FAERS Safety Report 4656225-3 (Version None)
Quarter: 2005Q2

REPORT INFORMATION
  Report Type: 
  Country: None (occurrence: None)
  Receive Date: 20050509
  Receipt Date: 20050304
  Transmission Date: 20051028
  Serious: No
  Sender: FDA-Public Use
  Company Number: US-GLAXOSMITHKLINE-A0548406A

PATIENT
  Age: 33 Year
  Sex: Female

DRUGS (5)
  1. AVANDAMET [Suspect]
     Dosage: 1TAB TWICE PER DAY
     Route: 048
     Dates: start: 20050301
  2. AMARYL [Concomitant]
     Route: 065
  3. ALLEGRA [Concomitant]
  4. Z PACK [Concomitant]
  5. BENZONATATE [Concomitant]
     Route: 065

REACTIONS (3)
  - ABDOMINAL PAIN UPPER [None]
  - ERUCTATION [None]
  - RETCHING [None]
